FAERS Safety Report 17230308 (Version 1)
Quarter: 2020Q1

REPORT INFORMATION
  Report Type: Spontaneous
  Country: CN (occurrence: CN)
  Receive Date: 20200103
  Receipt Date: 20200103
  Transmission Date: 20200409
  Serious: Yes (Hospitalization, Other)
  Sender: FDA-Public Use
  Company Number: CN-PFIZER INC-2019560446

PATIENT
  Age: 93 Year
  Sex: Male

DRUGS (2)
  1. NORVASC [Suspect]
     Active Substance: AMLODIPINE BESYLATE
     Indication: CARDIAC PACEMAKER INSERTION
  2. NORVASC [Suspect]
     Active Substance: AMLODIPINE BESYLATE
     Indication: ARRHYTHMIA
     Dosage: 2.5 MG, 1X/DAY
     Route: 048
     Dates: start: 20190920, end: 20190923

REACTIONS (6)
  - Arteriosclerosis [Unknown]
  - Oedema peripheral [Recovering/Resolving]
  - Rash [Unknown]
  - Pruritus [Unknown]
  - Off label use [Unknown]
  - Product use in unapproved indication [Unknown]

NARRATIVE: CASE EVENT DATE: 20190920
